FAERS Safety Report 11370586 (Version 2)
Quarter: 2015Q3

REPORT INFORMATION
  Report Type: Report from Study
  Country: US (occurrence: US)
  Receive Date: 20150812
  Receipt Date: 20150923
  Transmission Date: 20151125
  Serious: Yes (Hospitalization)
  Sender: FDA-Public Use
  Company Number: US-BIOGENIDEC-2015BI111175

PATIENT
  Age: 56 Year
  Sex: Male

DRUGS (1)
  1. TECFIDERA [Suspect]
     Active Substance: DIMETHYL FUMARATE
     Indication: MULTIPLE SCLEROSIS
     Dates: start: 20130924

REACTIONS (7)
  - Loss of control of legs [Not Recovered/Not Resolved]
  - Abasia [Not Recovered/Not Resolved]
  - Skin ulcer [Unknown]
  - Somnolence [Recovered/Resolved]
  - Coordination abnormal [Not Recovered/Not Resolved]
  - Quadriplegia [Not Recovered/Not Resolved]
  - Emotional distress [Unknown]

NARRATIVE: CASE EVENT DATE: 201410
